FAERS Safety Report 6063942-X (Version None)
Quarter: 2009Q1

REPORT INFORMATION
  Report Type: 
  Country: None (occurrence: None)
  Receive Date: 20090204
  Receipt Date: 20090123
  Transmission Date: 20090719
  Serious: Yes (Other)
  Sender: FDA-Public Use
  Company Number: PHHY2008JP24788

PATIENT
  Sex: Female
  Weight: 45 kg

DRUGS (6)
  1. COMTAN [Suspect]
     Indication: DRUG EFFECT DECREASED
     Dosage: 400 MG DAILY
     Route: 048
     Dates: start: 20080124, end: 20080821
  2. CARBIDOPA AND LEVODOPA [Concomitant]
     Indication: PARKINSON'S DISEASE
     Dosage: UNK
     Route: 048
     Dates: start: 20040122
  3. PRAMIPEXOLE DIHYDROCHLORIDE [Concomitant]
     Indication: PARKINSON'S DISEASE
     Dosage: 1.5 MG
     Route: 048
     Dates: start: 20050811
  4. PRAMIPEXOLE DIHYDROCHLORIDE [Concomitant]
     Dosage: 2.25 MG
     Route: 048
     Dates: start: 20050811
  5. PURSENNID                               /SCH/ [Concomitant]
     Dosage: 48 MG
     Route: 048
     Dates: start: 20051201
  6. SELTOUCH [Concomitant]
     Dosage: UNK
     Dates: start: 20070222

REACTIONS (2)
  - CONDITION AGGRAVATED [None]
  - DYSKINESIA [None]
